FAERS Safety Report 6533656-8 (Version None)
Quarter: 2010Q1

REPORT INFORMATION
  Report Type: 
  Country: None (occurrence: None)
  Receive Date: 20100108
  Receipt Date: 20100108
  Transmission Date: 20100710
  Serious: Yes (Life-Threatening)
  Sender: FDA-Public Use
  Company Number: None

PATIENT
  Age: 16 Year
  Sex: Female
  Weight: 74.3899 kg

DRUGS (2)
  1. LORAZEPAM [Suspect]
     Indication: EPILEPSY
     Dosage: 1 MG BID AND PRN PO
     Route: 048
     Dates: start: 20091219, end: 20091231
  2. RISPERIDONE [Suspect]
     Indication: AFFECTIVE DISORDER
     Dosage: 0.5 MG TID PO
     Route: 048
     Dates: start: 20091224, end: 20100104

REACTIONS (5)
  - ABNORMAL BEHAVIOUR [None]
  - CONVULSION [None]
  - PRODUCT QUALITY ISSUE [None]
  - PRODUCT SUBSTITUTION ISSUE [None]
  - SCREAMING [None]
